FAERS Safety Report 5130387-6 (Version None)
Quarter: 2006Q4

REPORT INFORMATION
  Report Type: 
  Country: None (occurrence: None)
  Receive Date: 20061019
  Receipt Date: 20061004
  Transmission Date: 20070319
  Serious: Yes (Death)
  Sender: FDA-Public Use
  Company Number: 2006AP04629

PATIENT
  Age: 35 Year
  Sex: Male
  Weight: 70 kg

DRUGS (7)
  1. DIPRIVAN [Suspect]
     Indication: GENERAL ANAESTHESIA
     Route: 042
  2. DIPRIVAN [Suspect]
     Indication: SEDATION
     Route: 042
  3. MIDAZOLAM HCL [Concomitant]
     Indication: INDUCTION OF ANAESTHESIA
     Route: 042
  4. FENTANYL CITRATE [Concomitant]
     Indication: INDUCTION OF ANAESTHESIA
  5. FENTANYL CITRATE [Concomitant]
     Indication: MAINTENANCE OF ANAESTHESIA
  6. VECURONIUM BROMIDE [Concomitant]
     Indication: INDUCTION OF ANAESTHESIA
     Route: 042
  7. VECURONIUM BROMIDE [Concomitant]
     Indication: MAINTENANCE OF ANAESTHESIA
     Route: 042

REACTIONS (4)
  - BRAIN DEATH [None]
  - BRAIN OEDEMA [None]
  - CONVULSION [None]
  - HYPOXIC ENCEPHALOPATHY [None]
